FAERS Safety Report 14056869 (Version 1)
Quarter: 2017Q4

REPORT INFORMATION
  Report Type: Spontaneous
  Country: US (occurrence: US)
  Receive Date: 20171006
  Receipt Date: 20171006
  Transmission Date: 20180321
  Serious: Yes (Hospitalization)
  Sender: FDA-Public Use
  Company Number: US-B.I. PHARMACEUTICALS,INC./RIDGEFIELD-2017-BI-053849

PATIENT
  Age: 77 Year
  Sex: Female

DRUGS (1)
  1. SPIRIVA [Suspect]
     Active Substance: TIOTROPIUM BROMIDE MONOHYDRATE
     Indication: CHRONIC OBSTRUCTIVE PULMONARY DISEASE
     Route: 055
     Dates: start: 201703, end: 201708

REACTIONS (5)
  - Chest pain [Recovered/Resolved]
  - Dyspnoea [Unknown]
  - Thrombosis [Unknown]
  - Fluid retention [Unknown]
  - Renal disorder [Unknown]

NARRATIVE: CASE EVENT DATE: 20171002
